FAERS Safety Report 4565121-1 (Version None)
Quarter: 2005Q1

REPORT INFORMATION
  Report Type: 
  Country: None (occurrence: None)
  Receive Date: 20050126
  Receipt Date: 20050126
  Transmission Date: 20050727
  Serious: No
  Sender: FDA-Public Use
  Company Number: None

PATIENT
  Age: 62 Year
  Sex: Female

DRUGS (2)
  1. MACRODANTIN [Suspect]
     Indication: MULTIPLE SCLEROSIS
     Dosage: 100 MG
  2. MACRODANTIN [Suspect]
     Indication: URINARY RETENTION
     Dosage: 100 MG

REACTIONS (1)
  - DRUG INEFFECTIVE [None]
